FAERS Safety Report 11869418 (Version 2)
Quarter: 2016Q1

REPORT INFORMATION
  Report Type: Report from Study
  Country: US (occurrence: US)
  Receive Date: 20151227
  Receipt Date: 20160115
  Transmission Date: 20160526
  Serious: Yes (Hospitalization)
  Sender: FDA-Public Use
  Company Number: US-MALLINCKRODT-T201505703

PATIENT
  Age: 54 Year
  Sex: Male

DRUGS (2)
  1. REPOSITORY CORTICOTROPIN INJECTION [Suspect]
     Active Substance: CORTICOTROPIN
     Indication: NEPHROTIC SYNDROME
     Dosage: 80 UNITS TWICE WKLY (SUN/THURS)
     Route: 058
     Dates: start: 201509, end: 20151129
  2. LIPITOR [Concomitant]
     Active Substance: ATORVASTATIN CALCIUM
     Indication: BLOOD CHOLESTEROL INCREASED
     Dosage: 80 MG, QD
     Route: 048

REACTIONS (2)
  - Acute myocardial infarction [Recovering/Resolving]
  - Gout [Not Recovered/Not Resolved]

NARRATIVE: CASE EVENT DATE: 20151206
